FAERS Safety Report 18960599 (Version 6)
Quarter: 2021Q4

REPORT INFORMATION
  Report Type: Spontaneous
  Country: CA (occurrence: CA)
  Receive Date: 20210303
  Receipt Date: 20211223
  Transmission Date: 20220304
  Serious: Yes (Hospitalization, Other)
  Sender: FDA-Public Use
  Company Number: CA-BEH-2021128833

PATIENT
  Age: 75 Year
  Sex: Female

DRUGS (11)
  1. ALBUREX [Suspect]
     Active Substance: ALBUMIN HUMAN
     Indication: Product used for unknown indication
     Dosage: 100 MILLILITER, TID
     Route: 042
     Dates: start: 20210212, end: 202102
  2. ALBUREX [Suspect]
     Active Substance: ALBUMIN HUMAN
     Dosage: 100 MILLILITER
     Route: 042
     Dates: start: 20210210
  3. ALBUREX [Suspect]
     Active Substance: ALBUMIN HUMAN
     Dosage: 100 MILLILITER
     Route: 042
     Dates: start: 20210211
  4. ALBUREX [Suspect]
     Active Substance: ALBUMIN HUMAN
     Dosage: 100 MILLILITER
     Route: 042
     Dates: start: 20210211
  5. ALBUREX [Suspect]
     Active Substance: ALBUMIN HUMAN
     Dosage: 100 MILLILITER
     Route: 042
     Dates: start: 20210211
  6. ALBUREX [Suspect]
     Active Substance: ALBUMIN HUMAN
     Dosage: 100 MILLILITER
     Route: 042
     Dates: start: 20210211
  7. ALBUREX [Suspect]
     Active Substance: ALBUMIN HUMAN
     Dosage: 100CC
     Route: 042
     Dates: start: 20210211
  8. ALBUREX [Suspect]
     Active Substance: ALBUMIN HUMAN
     Dosage: 100CC
     Route: 042
     Dates: start: 20210212
  9. ALBUREX [Suspect]
     Active Substance: ALBUMIN HUMAN
     Dosage: 100CC
     Route: 042
     Dates: start: 20210212
  10. ALBUREX [Suspect]
     Active Substance: ALBUMIN HUMAN
     Dosage: 100CC
     Route: 042
     Dates: start: 20210212
  11. ALBUREX [Suspect]
     Active Substance: ALBUMIN HUMAN
     Dosage: 100 MILLILITER, TID
     Route: 041
     Dates: start: 202102, end: 202102

REACTIONS (17)
  - Dyspnoea [Unknown]
  - Wheezing [Unknown]
  - Hypoxia [Unknown]
  - Restlessness [Unknown]
  - Anxiety [Unknown]
  - Hypertension [Unknown]
  - Tachycardia [Unknown]
  - Infectious pleural effusion [Unknown]
  - Pulmonary oedema [Unknown]
  - Pneumonia [Unknown]
  - Aspiration [Unknown]
  - Haemothorax [Unknown]
  - Chest tube insertion [Unknown]
  - Lung opacity [Unknown]
  - Oxygen saturation decreased [Unknown]
  - Oxygen therapy [Unknown]
  - Pleural effusion [Unknown]

NARRATIVE: CASE EVENT DATE: 20210201
